FAERS Safety Report 12765673 (Version 1)
Quarter: 2016Q3

REPORT INFORMATION
  Report Type: Spontaneous
  Country: US (occurrence: US)
  Receive Date: 20160915
  Receipt Date: 20160915
  Transmission Date: 20161109
  Serious: No
  Sender: FDA-Public Use
  Company Number: None

PATIENT
  Age: 47 Year
  Sex: Female

DRUGS (1)
  1. SIMPONI [Suspect]
     Active Substance: GOLIMUMAB
     Indication: PSORIATIC ARTHROPATHY
     Dosage: SIMPONI 50MG - SUBCUTANEOUSLY - FREQUENCY - MON
     Route: 058
     Dates: start: 20130801

REACTIONS (2)
  - Sunburn [None]
  - Photosensitivity reaction [None]

NARRATIVE: CASE EVENT DATE: 20160704
